FAERS Safety Report 12218551 (Version 1)
Quarter: 2016Q1

REPORT INFORMATION
  Report Type: Spontaneous
  Country: US (occurrence: US)
  Receive Date: 20160329
  Receipt Date: 20160329
  Transmission Date: 20160526
  Serious: No
  Sender: FDA-Public Use
  Company Number: US-BAUSCH-BL-2015-018343

PATIENT
  Age: 68 Year
  Sex: Female
  Weight: 59.93 kg

DRUGS (7)
  1. LORATADINE. [Concomitant]
     Active Substance: LORATADINE
     Indication: MULTIPLE ALLERGIES
     Route: 048
     Dates: start: 2011
  2. IRON [Concomitant]
     Active Substance: IRON
     Indication: SERUM FERRITIN DECREASED
     Route: 048
     Dates: start: 2014
  3. RETIN-A [Suspect]
     Active Substance: TRETINOIN
     Indication: THERAPEUTIC SKIN CARE TOPICAL
     Dosage: APPLIED ON HER FACE DAILY AT NIGHT
     Route: 061
  4. ATENOLOL. [Concomitant]
     Active Substance: ATENOLOL
     Indication: SUPRAVENTRICULAR TACHYCARDIA
     Route: 048
     Dates: start: 2013
  5. NORTRIPTYLINE [Concomitant]
     Active Substance: NORTRIPTYLINE
     Indication: PAIN
     Route: 048
  6. ASPIRIN. [Concomitant]
     Active Substance: ASPIRIN
     Indication: CARDIAC DISORDER
     Route: 048
     Dates: start: 2012
  7. LODINE [Concomitant]
     Active Substance: ETODOLAC
     Indication: PAIN
     Route: 048
     Dates: start: 2009

REACTIONS (2)
  - Off label use [Unknown]
  - No adverse event [Unknown]
